FAERS Safety Report 4766984-7 (Version None)
Quarter: 2005Q3

REPORT INFORMATION
  Report Type: 
  Country: None (occurrence: None)
  Receive Date: 20050908
  Receipt Date: 20050824
  Transmission Date: 20060218
  Serious: Yes (Other)
  Sender: FDA-Public Use
  Company Number: 2005S1000251

PATIENT
  Sex: Female

DRUGS (1)
  1. ACITRETIN (ACITRETIN) (25 MG) [Suspect]
     Dosage: VAG
     Route: 067

REACTIONS (2)
  - PREGNANCY OF PARTNER [None]
  - TRANSMISSION OF DRUG VIA SEMEN [None]
